FAERS Safety Report 12007186 (Version 2)
Quarter: 2016Q1

REPORT INFORMATION
  Report Type: Spontaneous
  Country: HU (occurrence: HU)
  Receive Date: 20160204
  Receipt Date: 20160215
  Transmission Date: 20160526
  Serious: Yes (Other)
  Sender: FDA-Public Use
  Company Number: HU-PFIZER INC-2016061923

PATIENT
  Age: 40 Year
  Sex: Male

DRUGS (4)
  1. SUTENT [Suspect]
     Active Substance: SUNITINIB MALATE
     Dosage: 50 MG, 1X/DAY IN ALTERNATIVE DOSING SCHEDULE
     Dates: start: 201212
  2. SUTENT [Suspect]
     Active Substance: SUNITINIB MALATE
     Dosage: 50 MG, DAILY IN ALTERNATIVE SCHEDULE
     Dates: start: 201210, end: 201211
  3. SUTENT [Suspect]
     Active Substance: SUNITINIB MALATE
     Indication: RENAL CELL CARCINOMA
     Dosage: 50 MG, 1X/DAY IN 4/2 DOSING SCHEDULE
     Dates: start: 20120911
  4. SUTENT [Suspect]
     Active Substance: SUNITINIB MALATE
     Dosage: 37.5 MG, 1X/DAY IN 4/2 DOSING SCHEDULE, DURING 1 YEAR
     Dates: start: 20130204

REACTIONS (14)
  - Diarrhoea [Unknown]
  - Renal cell carcinoma [Unknown]
  - Nausea [Unknown]
  - Transaminases increased [Unknown]
  - Dyslipidaemia [Unknown]
  - Disease progression [Unknown]
  - Body temperature increased [Unknown]
  - Dysgeusia [Unknown]
  - Hyperaesthesia [Unknown]
  - Abdominal abscess [Unknown]
  - Vomiting [Unknown]
  - Fatigue [Unknown]
  - Gastrooesophageal reflux disease [Unknown]
  - C-reactive protein increased [Unknown]

NARRATIVE: CASE EVENT DATE: 20121108
